FAERS Safety Report 24719172 (Version 3)
Quarter: 2025Q3

REPORT INFORMATION
  Report Type: Spontaneous
  Country: EU (occurrence: EU)
  Receive Date: 20241210
  Receipt Date: 20250802
  Transmission Date: 20251020
  Serious: Yes (Other)
  Sender: ALEXION PHARMACEUTICALS
  Company Number: EU-AstraZeneca-CH-00760019AM

PATIENT
  Age: 80 Year
  Sex: Female

DRUGS (2)
  1. ROFLUMILAST [Suspect]
     Active Substance: ROFLUMILAST
  2. LETROZOLE [Concomitant]
     Active Substance: LETROZOLE
     Route: 065

REACTIONS (2)
  - Neoplasm malignant [Unknown]
  - Chronic obstructive pulmonary disease [Unknown]
